FAERS Safety Report 13932558 (Version 1)
Quarter: 2017Q3

REPORT INFORMATION
  Report Type: Not Available
  Country: GB (occurrence: GB)
  Receive Date: 20170904
  Receipt Date: 20170904
  Transmission Date: 20171127
  Serious: Yes (Other)
  Sender: FDA-Public Use
  Company Number: GB-CLOVIS-2017-0338-0122

PATIENT
  Sex: Male

DRUGS (2)
  1. CO-338 [Suspect]
     Active Substance: RUCAPARIB
  2. CO-338 [Suspect]
     Active Substance: RUCAPARIB
     Indication: PROSTATE CANCER
     Route: 048

REACTIONS (2)
  - Bone marrow failure [Unknown]
  - Dysgeusia [Unknown]
